FAERS Safety Report 8281597-0 (Version None)
Quarter: 2012Q2

REPORT INFORMATION
  Report Type: 
  Country: None (occurrence: None)
  Receive Date: 20120413
  Receipt Date: 20120404
  Transmission Date: 20120825
  Serious: Yes (Life-Threatening, Hospitalization)
  Sender: FDA-Public Use
  Company Number: JP-US-EMD SERONO, INC.-7122892

PATIENT
  Age: 25 Year
  Sex: Female

DRUGS (2)
  1. MENOTROPINS [Suspect]
     Indication: OVULATION INDUCTION
  2. PROFASI HP [Suspect]
     Indication: OVULATION INDUCTION

REACTIONS (5)
  - ANAEMIA [None]
  - WEIGHT DECREASED [None]
  - FALL [None]
  - THROMBOCYTOPENIA [None]
  - LEUKOPENIA [None]
